FAERS Safety Report 23144825 (Version 1)
Quarter: 2023Q4

REPORT INFORMATION
  Report Type: Spontaneous
  Country: US (occurrence: US)
  Receive Date: 20231103
  Receipt Date: 20231103
  Transmission Date: 20240110
  Serious: No
  Sender: FDA-Public Use
  Company Number: US-GILEAD-2023-0649687

PATIENT
  Sex: Male

DRUGS (2)
  1. CAYSTON [Suspect]
     Active Substance: AZTREONAM
     Indication: Chronic obstructive pulmonary disease
     Dosage: UNK (28-DAYS ON AND 28-DAYS OFF)
     Route: 055
     Dates: start: 20230701
  2. CAYSTON [Suspect]
     Active Substance: AZTREONAM
     Indication: Bronchiectasis

REACTIONS (2)
  - Product dose omission in error [Not Recovered/Not Resolved]
  - Off label use [Not Recovered/Not Resolved]

NARRATIVE: CASE EVENT DATE: 20231031
